FAERS Safety Report 10871155 (Version 2)
Quarter: 2015Q2

REPORT INFORMATION
  Report Type: Spontaneous
  Country: US (occurrence: US)
  Receive Date: 20150226
  Receipt Date: 20150428
  Transmission Date: 20150821
  Serious: No
  Sender: FDA-Public Use
  Company Number: US-ASTRAZENECA-2015SE15727

PATIENT
  Age: 85 Year
  Sex: Female
  Weight: 60.8 kg

DRUGS (9)
  1. SPIRONLOLACTONE [Concomitant]
  2. SYMBICORT [Suspect]
     Active Substance: BUDESONIDE\FORMOTEROL FUMARATE DIHYDRATE
     Indication: ASTHMA
     Dosage: 160MCG/4.5MCG,, 2 PUFFS TWO TIMES A DAY,
     Route: 055
     Dates: start: 20150206, end: 20150210
  3. LEVALBUTEROL INHALER [Concomitant]
     Route: 055
  4. WOMEN^^^^S VITAMIN [Concomitant]
     Indication: HYPOVITAMINOSIS
  5. SYMBICORT [Suspect]
     Active Substance: BUDESONIDE\FORMOTEROL FUMARATE DIHYDRATE
     Indication: ASTHMA
     Dosage: 320/9 UG,TWO TIMES A DAY
     Route: 055
     Dates: start: 2003
  6. VERAPAMIL [Concomitant]
     Active Substance: VERAPAMIL HYDROCHLORIDE
  7. ATORVASTATIN [Concomitant]
     Active Substance: ATORVASTATIN
  8. CARDIO MAGNESIUM AND ZINC [Concomitant]
     Indication: HYPOVITAMINOSIS
  9. FUROSIMIDE [Concomitant]
     Active Substance: FUROSEMIDE
     Route: 048

REACTIONS (2)
  - Aphonia [Not Recovered/Not Resolved]
  - Fear of disease [Not Recovered/Not Resolved]

NARRATIVE: CASE EVENT DATE: 2014
